FAERS Safety Report 25358690 (Version 1)
Quarter: 2025Q2

REPORT INFORMATION
  Report Type: Spontaneous
  Country: US (occurrence: US)
  Receive Date: 20250526
  Receipt Date: 20250526
  Transmission Date: 20250717
  Serious: Yes (Hospitalization, Other)
  Sender: APOTEX
  Company Number: US-APOTEX-2025AP007691

PATIENT
  Age: 45 Year
  Sex: Male

DRUGS (5)
  1. ALPRAZOLAM [Suspect]
     Active Substance: ALPRAZOLAM
     Indication: Product used for unknown indication
     Dosage: UNK, QD
     Route: 065
  2. 4-AMINO-3-PHENYLBUTYRIC ACID [Suspect]
     Active Substance: 4-AMINO-3-PHENYLBUTYRIC ACID
     Indication: Product used for unknown indication
     Dosage: UNK, QD
     Route: 065
  3. DROMOSTANOLONE PROPIONATE [Concomitant]
     Active Substance: DROMOSTANOLONE PROPIONATE
     Indication: Product used for unknown indication
     Dosage: UNK, QD
     Route: 065
  4. MODAFINIL [Concomitant]
     Active Substance: MODAFINIL
     Indication: Product used for unknown indication
     Dosage: UNK, QD
     Route: 065
  5. HERBALS\MITRAGYNINE [Concomitant]
     Active Substance: HERBALS\MITRAGYNINE
     Indication: Product used for unknown indication
     Dosage: UNK, QD
     Route: 065

REACTIONS (12)
  - Lactic acidosis [Unknown]
  - Unresponsive to stimuli [Recovering/Resolving]
  - Foaming at mouth [Recovering/Resolving]
  - Gait disturbance [Recovering/Resolving]
  - Abnormal behaviour [Recovering/Resolving]
  - Hyponatraemia [Unknown]
  - Delusion [Recovering/Resolving]
  - Prescription drug used without a prescription [Unknown]
  - Lethargy [Recovering/Resolving]
  - Disorientation [Recovering/Resolving]
  - Withdrawal syndrome [Recovering/Resolving]
  - Confusional state [Recovering/Resolving]
